FAERS Safety Report 7191595-6 (Version None)
Quarter: 2010Q4

REPORT INFORMATION
  Report Type: 
  Country: None (occurrence: None)
  Receive Date: 20101223
  Receipt Date: 20100817
  Transmission Date: 20110411
  Serious: No
  Sender: FDA-Public Use
  Company Number: US-AMGEN-KDL432019

PATIENT

DRUGS (11)
  1. ENBREL [Suspect]
     Indication: PRODUCT USED FOR UNKNOWN INDICATION
     Dosage: 50 MG, QWK
     Route: 058
  2. HYDROXYCHLOROQUINE SULFATE [Concomitant]
     Dosage: 200 MG, UNK
  3. MIRTAZAPINE [Concomitant]
     Dosage: 15 MG, UNK
  4. PREDNISONE [Concomitant]
     Dosage: 1 MG, UNK
  5. LEVOTHYROXINE SODIUM [Concomitant]
     Dosage: 100 MG, UNK
  6. FEXOFENADINE HCL [Concomitant]
     Dosage: 30 MG, UNK
  7. LEFLUNOMIDE [Concomitant]
     Dosage: 10 MG, UNK
  8. NORTRIPTYLINE [Concomitant]
     Dosage: 10 MG, UNK
  9. CALCIUM [Concomitant]
     Dosage: 500 MG, UNK
  10. ETODOLAC [Concomitant]
     Dosage: 200 MG, UNK
  11. ALPRAZOLAM [Concomitant]
     Dosage: 1 MG, UNK

REACTIONS (2)
  - HEADACHE [None]
  - MALAISE [None]
